FAERS Safety Report 4615026-2 (Version None)
Quarter: 2005Q1

REPORT INFORMATION
  Report Type: 
  Country: None (occurrence: None)
  Receive Date: 20050318
  Receipt Date: 20050318
  Transmission Date: 20050727
  Serious: No
  Sender: FDA-Public Use
  Company Number: None

PATIENT
  Age: 42 Year
  Sex: Male
  Weight: 72.5755 kg

DRUGS (4)
  1. GABAPENTIN [Suspect]
     Indication: INTERVERTEBRAL DISC DISORDER
     Dosage: PO TID
     Route: 048
  2. GABAPENTIN [Suspect]
     Indication: NEUROPATHY
     Dosage: PO TID
     Route: 048
  3. PERCOCET [Concomitant]
  4. RESTORIL [Concomitant]

REACTIONS (2)
  - DIFFICULTY IN WALKING [None]
  - HYPOAESTHESIA [None]
